FAERS Safety Report 19186498 (Version 1)
Quarter: 2021Q2

REPORT INFORMATION
  Report Type: Spontaneous
  Country: BR (occurrence: BR)
  Receive Date: 20210427
  Receipt Date: 20210427
  Transmission Date: 20210717
  Serious: Yes (Other)
  Sender: FDA-Public Use
  Company Number: BR-TAKEDA-2021TUS025829

PATIENT
  Age: 26 Year
  Sex: Male

DRUGS (2)
  1. MESALAZINE [Suspect]
     Active Substance: MESALAMINE
     Indication: COLITIS ULCERATIVE
     Dosage: 4.5 GRAM, QD
     Route: 065
  2. PREDNISONE. [Concomitant]
     Active Substance: PREDNISONE
     Dosage: UNK

REACTIONS (10)
  - Cough [Unknown]
  - Respiratory rate increased [Unknown]
  - Dehydration [Unknown]
  - Pyrexia [Unknown]
  - Pleural effusion [Unknown]
  - Serositis [Unknown]
  - Colitis ulcerative [Unknown]
  - Blood pressure decreased [Unknown]
  - Heart rate abnormal [Unknown]
  - Gastrointestinal sounds abnormal [Unknown]
